FAERS Safety Report 12258128 (Version 1)
Quarter: 2016Q2

REPORT INFORMATION
  Report Type: Spontaneous
  Country: US (occurrence: US)
  Receive Date: 20160412
  Receipt Date: 20160412
  Transmission Date: 20160815
  Serious: No
  Sender: FDA-Public Use
  Company Number: US-SA-2015SA042228

PATIENT
  Age: 74 Year
  Sex: Female
  Weight: 48.53 kg

DRUGS (1)
  1. ALLEGRA [Suspect]
     Active Substance: FEXOFENADINE HYDROCHLORIDE
     Indication: MULTIPLE ALLERGIES
     Dosage: TAKEN FROM:FEW DAYS AGO.
     Route: 048

REACTIONS (1)
  - Insomnia [Recovered/Resolved]
